FAERS Safety Report 6400827-0 (Version None)
Quarter: 2009Q4

REPORT INFORMATION
  Report Type: 
  Country: None (occurrence: None)
  Receive Date: 20091014
  Receipt Date: 20091008
  Transmission Date: 20100525
  Serious: Yes (Hospitalization)
  Sender: FDA-Public Use
  Company Number: US-GENENTECH-291566

PATIENT
  Sex: Male
  Weight: 96.599 kg

DRUGS (16)
  1. RITUXIMAB [Suspect]
     Indication: SARCOIDOSIS
     Dosage: 1000 MG, UNK
     Route: 042
     Dates: start: 20090828
  2. ATIVAN [Concomitant]
     Indication: DRUG USE FOR UNKNOWN INDICATION
     Dosage: 1 MG, BID
  3. PREDNISONE TAB [Concomitant]
     Indication: DRUG USE FOR UNKNOWN INDICATION
     Dosage: 10 MG, BID
  4. CALCIUM/VITAMIN D [Concomitant]
     Indication: DRUG USE FOR UNKNOWN INDICATION
     Dosage: UNK
  5. MIRALAX [Concomitant]
     Indication: DRUG USE FOR UNKNOWN INDICATION
     Dosage: 17 G, QD
  6. LASIX [Concomitant]
     Indication: DRUG USE FOR UNKNOWN INDICATION
  7. ALBUTEROL [Concomitant]
     Indication: DRUG USE FOR UNKNOWN INDICATION
     Dosage: UNK
  8. FOLIC ACID [Concomitant]
     Indication: DRUG USE FOR UNKNOWN INDICATION
     Dosage: 1 MG, QD
  9. VICODIN ES [Concomitant]
     Indication: DRUG USE FOR UNKNOWN INDICATION
     Dosage: UNK
  10. QUINAPRIL [Concomitant]
     Indication: DRUG USE FOR UNKNOWN INDICATION
     Dosage: 10 MG, QD
  11. BUSPAR [Concomitant]
     Indication: DRUG USE FOR UNKNOWN INDICATION
     Dosage: 15 MG, TID
  12. ASPIRIN [Concomitant]
     Indication: DRUG USE FOR UNKNOWN INDICATION
     Dosage: 81 MG, QD
  13. ULTRAM [Concomitant]
     Indication: DRUG USE FOR UNKNOWN INDICATION
     Dosage: 50 MG, Q6H
  14. POTASSIUM CHLORIDE [Concomitant]
     Indication: DRUG USE FOR UNKNOWN INDICATION
     Dosage: 10 MEQ, QD
  15. SPIRIVA [Concomitant]
     Indication: DRUG USE FOR UNKNOWN INDICATION
     Dosage: 1 PUFF, QD
  16. OXYGEN @ HOME [Concomitant]
     Indication: DRUG USE FOR UNKNOWN INDICATION
     Dosage: 2 L, PRN

REACTIONS (1)
  - BRONCHOSPASM [None]
